FAERS Safety Report 6998144-3 (Version None)
Quarter: 2010Q3

REPORT INFORMATION
  Report Type: 
  Country: None (occurrence: None)
  Receive Date: 20100920
  Receipt Date: 20100115
  Transmission Date: 20110219
  Serious: Yes (Other)
  Sender: FDA-Public Use
  Company Number: US-ASTRAZENECA-2009SE20187

PATIENT
  Age: 14051 Day
  Sex: Female
  Weight: 72.6 kg

DRUGS (16)
  1. SEROQUEL/SEROQUEL XR [Suspect]
     Indication: BIPOLAR I DISORDER
     Route: 048
     Dates: start: 20080101
  2. SEROQUEL/SEROQUEL XR [Suspect]
     Indication: BIPOLAR DISORDER
     Route: 048
     Dates: start: 20080101
  3. SEROQUEL/SEROQUEL XR [Suspect]
     Route: 048
     Dates: start: 20081029
  4. SEROQUEL/SEROQUEL XR [Suspect]
     Route: 048
     Dates: start: 20081029
  5. ABILIFY [Concomitant]
     Dates: start: 20080101
  6. ABILIFY [Concomitant]
     Dates: start: 20080227
  7. TRAZODONE HCL [Concomitant]
     Dates: start: 20080226
  8. CLONAZEPAM [Concomitant]
     Dates: start: 20080226
  9. THEOPHYLLINE [Concomitant]
     Dates: start: 20080226
  10. EFFEXOR XR [Concomitant]
     Dates: start: 20080226
  11. MIRTAZAPINE [Concomitant]
     Dates: start: 20080226
  12. DILTIAZEM [Concomitant]
     Dates: start: 20080226
  13. LISINOPRIL [Concomitant]
     Dates: start: 20080722
  14. SINGULAIR [Concomitant]
     Dates: start: 20080226
  15. WARFARIN SODIUM [Concomitant]
     Dates: start: 20080722
  16. NABUMETONE [Concomitant]
     Dates: start: 20081119

REACTIONS (3)
  - DIABETIC COMA [None]
  - PNEUMONIA [None]
  - TYPE 2 DIABETES MELLITUS [None]
